FAERS Safety Report 20319618 (Version 1)
Quarter: 2022Q1

REPORT INFORMATION
  Report Type: Spontaneous
  Country: US (occurrence: US)
  Receive Date: 20220110
  Receipt Date: 20220110
  Transmission Date: 20220424
  Serious: Yes (Other)
  Sender: FDA-Public Use
  Company Number: US-ABBVIE-22K-163-4223140-00

PATIENT
  Sex: Male
  Weight: 83.990 kg

DRUGS (4)
  1. IMBRUVICA [Suspect]
     Active Substance: IBRUTINIB
     Indication: Chronic lymphocytic leukaemia
     Dosage: 3 120MG TABS DAILY
     Route: 048
     Dates: start: 20211216
  2. PREDNISONE [Concomitant]
     Active Substance: PREDNISONE
     Indication: Full blood count abnormal
  3. ALLOPURINOL [Concomitant]
     Active Substance: ALLOPURINOL
     Indication: Renal disorder
  4. ELIQUIS [Concomitant]
     Active Substance: APIXABAN
     Indication: Atrial fibrillation

REACTIONS (7)
  - Full blood count decreased [Recovering/Resolving]
  - Nasal discomfort [Not Recovered/Not Resolved]
  - Headache [Not Recovered/Not Resolved]
  - Ear pain [Not Recovered/Not Resolved]
  - Toothache [Not Recovered/Not Resolved]
  - Sinusitis [Not Recovered/Not Resolved]
  - Paranasal sinus inflammation [Unknown]

NARRATIVE: CASE EVENT DATE: 20211201
